FAERS Safety Report 6212326-X (Version None)
Quarter: 2009Q2

REPORT INFORMATION
  Report Type: 
  Country: None (occurrence: None)
  Receive Date: 20090529
  Receipt Date: 20090514
  Transmission Date: 20091009
  Serious: Yes (Life-Threatening, Hospitalization)
  Sender: FDA-Public Use
  Company Number: DSJ-2009-04618

PATIENT
  Age: 84 Year
  Sex: Male
  Weight: 60 kg

DRUGS (11)
  1. OLMESARTAN MEDOXOMIL [Suspect]
     Indication: HYPERTENSION
     Dosage: 40 MG (20 MG, 2 IN 1 D), PER ORAL
     Route: 048
  2. CARVEDILOL [Suspect]
     Indication: HYPERTENSION
     Dosage: 20 MG (10 MG, 2 IN 1 D), PER ORAL; 30 MG (2 IN 1 D), PER ORAL; 20 MG (20 MG, 1 IN 1 D), PER ORAL
     Route: 048
     Dates: start: 20090415
  3. DILTIAZEM HYDROCHLORIDE [Suspect]
     Dosage: 100 MG (100 MG, 1 IN 1 D), PER ORAL
     Route: 048
     Dates: start: 20090406, end: 20090408
  4. CALBLOCK (AZELNIDIPINE) [Suspect]
     Indication: HYPERTENSION
     Dosage: 16 MG (16 MG, 1 IN 1 D), PER ORAL
     Route: 048
  5. ATELEC (CILNIDIPINE) [Suspect]
     Dosage: 10 MG (10 MG, 1 IN 1 D), PER ORAL
     Route: 048
  6. NATRIX (INDAPAMIDE) [Suspect]
     Dosage: 4 MG (2 MG, 2 IN 1 D), PER ORAL
     Route: 048
  7. TAKEPRON OD (LANSOPRAZOLE) [Concomitant]
  8. AMARYL [Concomitant]
  9. BASEN (VOGLIBOSE) [Concomitant]
  10. ACTOS [Concomitant]
  11. IRRIBOW (RAMOSETRON HYDROCHLORIDE) [Concomitant]

REACTIONS (7)
  - BLOOD PRESSURE DECREASED [None]
  - BRADYCARDIA [None]
  - CIRCULATORY COLLAPSE [None]
  - DEPRESSED LEVEL OF CONSCIOUSNESS [None]
  - DISCOMFORT [None]
  - HYPERKALAEMIA [None]
  - RENAL IMPAIRMENT [None]
